FAERS Safety Report 8536882-1 (Version None)
Quarter: 2012Q3

REPORT INFORMATION
  Report Type: 
  Country: None (occurrence: None)
  Receive Date: 20120725
  Receipt Date: 20120716
  Transmission Date: 20120928
  Serious: Yes (Other)
  Sender: FDA-Public Use
  Company Number: US-ASTRAZENECA-2012SE49123

PATIENT
  Age: 92 Year
  Sex: Male

DRUGS (1)
  1. SEROQUEL [Suspect]
     Route: 048

REACTIONS (7)
  - CRANIOCEREBRAL INJURY [None]
  - MEMORY IMPAIRMENT [None]
  - SWOLLEN TONGUE [None]
  - HEAD INJURY [None]
  - DYSSTASIA [None]
  - DIZZINESS [None]
  - FALL [None]
